FAERS Safety Report 16491733 (Version 3)
Quarter: 2019Q3

REPORT INFORMATION
  Report Type: Report from Study
  Country: US (occurrence: US)
  Receive Date: 20190628
  Receipt Date: 20190813
  Transmission Date: 20191004
  Serious: Yes (Hospitalization)
  Sender: FDA-Public Use
  Company Number: US-ALEXION PHARMACEUTICALS INC.-A201909426

PATIENT
  Sex: Female

DRUGS (1)
  1. SOLIRIS [Suspect]
     Active Substance: ECULIZUMAB
     Indication: PRODUCT USED FOR UNKNOWN INDICATION
     Dosage: UNK
     Route: 065

REACTIONS (15)
  - Nausea [Recovered/Resolved]
  - Neck pain [Unknown]
  - Musculoskeletal stiffness [Unknown]
  - Memory impairment [Unknown]
  - Pyrexia [Unknown]
  - Pain [Unknown]
  - Diarrhoea [Recovered/Resolved]
  - Headache [Unknown]
  - Peripheral swelling [Unknown]
  - Procedural headache [Not Recovered/Not Resolved]
  - Influenza like illness [Unknown]
  - Vomiting [Unknown]
  - Thyroid hormones decreased [Unknown]
  - Confusional state [Unknown]
  - Insomnia [Unknown]

NARRATIVE: CASE EVENT DATE: 201906
